FAERS Safety Report 5533591-8 (Version None)
Quarter: 2007Q4

REPORT INFORMATION
  Report Type: 
  Country: None (occurrence: None)
  Receive Date: 20071129
  Receipt Date: 20071119
  Transmission Date: 20080405
  Serious: Yes (Hospitalization)
  Sender: FDA-Public Use
  Company Number: 2007BI022082

PATIENT
  Age: 44 Year
  Sex: Male

DRUGS (1)
  1. NATALIZUMAB [Suspect]
     Indication: MULTIPLE SCLEROSIS
     Dosage: 300 MG;QM;IV
     Route: 042
     Dates: start: 20070705

REACTIONS (3)
  - HIP FRACTURE [None]
  - POSTOPERATIVE WOUND INFECTION [None]
  - WOUND INFECTION STAPHYLOCOCCAL [None]
